FAERS Safety Report 8966854 (Version 2)
Quarter: 2012Q4

REPORT INFORMATION
  Report Type: Report from Study
  Country: US (occurrence: US)
  Receive Date: 20121214
  Receipt Date: 20121217
  Transmission Date: 20130627
  Serious: Yes (Other)
  Sender: FDA-Public Use
  Company Number: US-ABBOTT-12P-163-1019067-00

PATIENT
  Sex: Male

DRUGS (6)
  1. HUMIRA [Suspect]
     Indication: PSORIASIS
     Dates: start: 2009
  2. HUMIRA [Suspect]
     Dates: start: 20121114, end: 20121114
  3. HUMIRA [Suspect]
     Dates: start: 20121121
  4. LISINOPPRIL [Concomitant]
     Indication: PRODUCT USED FOR UNKNOWN INDICATION
  5. METFORMIN [Concomitant]
     Indication: DIABETES MELLITUS
  6. PRILOSEC [Concomitant]
     Indication: GASTROOESOPHAGEAL REFLUX DISEASE

REACTIONS (3)
  - Blood count abnormal [Recovered/Resolved]
  - Diabetes mellitus [Unknown]
  - Gastrooesophageal reflux disease [Unknown]
